FAERS Safety Report 15619045 (Version 4)
Quarter: 2019Q1

REPORT INFORMATION
  Report Type: Report from Study
  Country: None (occurrence: TR)
  Receive Date: 20181114
  Receipt Date: 20190104
  Transmission Date: 20190417
  Serious: Yes (Death, Hospitalization)
  Sender: FDA-Public Use
  Company Number: TR-ABBVIE-18S-161-2554306-00

PATIENT
  Age: 62 Year
  Sex: Male
  Weight: 63 kg

DRUGS (5)
  1. ALDACTAZIDE [Concomitant]
     Active Substance: HYDROCHLOROTHIAZIDE\SPIRONOLACTONE
     Indication: SERUM FERRITIN INCREASED
     Route: 048
  2. FUARTE [Concomitant]
     Indication: SERUM FERRITIN INCREASED
     Route: 048
  3. DUODOPA [Suspect]
     Active Substance: CARBIDOPA\LEVODOPA
     Indication: PARKINSON^S DISEASE
     Dosage: MD(ML): 8.00, CD(ML): 5.70, ED(ML):3.00
     Route: 050
     Dates: start: 20180926
  4. DOPADEX SR [Concomitant]
     Indication: PARKINSON^S DISEASE
     Route: 048
  5. DUODOPA [Suspect]
     Active Substance: CARBIDOPA\LEVODOPA
     Route: 050

REACTIONS (5)
  - Haemoglobin decreased [Unknown]
  - Loss of consciousness [Recovered/Resolved]
  - Muscle contractions involuntary [Recovered/Resolved]
  - Asphyxia [Fatal]
  - Infection [Fatal]

NARRATIVE: CASE EVENT DATE: 2018
